FAERS Safety Report 12159814 (Version 2)
Quarter: 2016Q1

REPORT INFORMATION
  Report Type: Spontaneous
  Country: JP (occurrence: JP)
  Receive Date: 20160308
  Receipt Date: 20160325
  Transmission Date: 20160526
  Serious: No
  Sender: FDA-Public Use
  Company Number: JP-ABBVIE-16P-087-1572759-00

PATIENT
  Age: 47 Year
  Sex: Male
  Weight: 58 kg

DRUGS (12)
  1. VALSARTAN. [Concomitant]
     Active Substance: VALSARTAN
     Indication: HYPERTENSION
  2. VALSARTAN. [Concomitant]
     Active Substance: VALSARTAN
     Indication: GLOMERULONEPHRITIS CHRONIC
     Route: 048
  3. FUROSEMIDE. [Concomitant]
     Active Substance: FUROSEMIDE
     Indication: GLOMERULONEPHRITIS CHRONIC
  4. VIEKIRAX [Suspect]
     Active Substance: OMBITASVIR\PARITAPREVIR\RITONAVIR
     Indication: CHRONIC HEPATITIS C
     Dosage: 2 TABLETS DAILY
     Route: 048
     Dates: start: 20160208, end: 20160229
  5. FUROSEMIDE. [Concomitant]
     Active Substance: FUROSEMIDE
     Indication: HYPERTENSION
  6. NIFEDIPINE. [Concomitant]
     Active Substance: NIFEDIPINE
     Indication: HYPERTENSION
  7. OSELTAMIVIR PHOSPHATE [Concomitant]
     Active Substance: OSELTAMIVIR PHOSPHATE
     Indication: PRODUCT USED FOR UNKNOWN INDICATION
  8. METHYLDOPA HYDRATE [Concomitant]
     Active Substance: METHYLDOPA
     Indication: HYPERTENSION
  9. NIFEDIPINE. [Concomitant]
     Active Substance: NIFEDIPINE
     Indication: GLOMERULONEPHRITIS CHRONIC
     Route: 048
  10. ALFACALCIDOL [Concomitant]
     Active Substance: ALFACALCIDOL
     Indication: HYPERTENSION
  11. METHYLDOPA HYDRATE [Concomitant]
     Active Substance: METHYLDOPA
     Indication: GLOMERULONEPHRITIS CHRONIC
  12. CETIRIZINE HYDROCHLORIDE. [Concomitant]
     Active Substance: CETIRIZINE HYDROCHLORIDE
     Indication: SEASONAL ALLERGY

REACTIONS (3)
  - Renal impairment [Recovered/Resolved]
  - Influenza like illness [Unknown]
  - Pyrexia [Recovered/Resolved]

NARRATIVE: CASE EVENT DATE: 20160222
